FAERS Safety Report 10716994 (Version 1)
Quarter: 2015Q1

REPORT INFORMATION
  Report Type: Spontaneous
  Country: CN (occurrence: CN)
  Receive Date: 20150116
  Receipt Date: 20150116
  Transmission Date: 20150721
  Serious: Yes (Death, Other)
  Sender: FDA-Public Use
  Company Number: CN-PFIZER INC-2015013677

PATIENT
  Age: 83 Year
  Sex: Male
  Weight: 50 kg

DRUGS (2)
  1. PIPERACILLIN SODIUM/TAZOBACTAM [Concomitant]
     Indication: FUNGAL INFECTION
     Dosage: 2.5 G, 2X/DAY
     Route: 041
  2. VFEND [Suspect]
     Active Substance: VORICONAZOLE
     Indication: FUNGAL INFECTION
     Dosage: 0.2 G, 2X/DAY
     Route: 042
     Dates: start: 20140711

REACTIONS (2)
  - Death [Fatal]
  - Renal impairment [Not Recovered/Not Resolved]

NARRATIVE: CASE EVENT DATE: 20140714
